FAERS Safety Report 7648119-6 (Version None)
Quarter: 2011Q3

REPORT INFORMATION
  Report Type: 
  Country: None (occurrence: None)
  Receive Date: 20110801
  Receipt Date: 20110726
  Transmission Date: 20111222
  Serious: Yes (Life-Threatening, Hospitalization)
  Sender: FDA-Public Use
  Company Number: FR-ASTRAZENECA-2011SE44729

PATIENT
  Age: 53 Year
  Sex: Female

DRUGS (7)
  1. CEFAMANDOLE NAFATE [Suspect]
     Route: 042
     Dates: start: 20110603, end: 20110603
  2. GELOFUSINE [Suspect]
     Indication: HYPOTENSION
     Dosage: 4%
     Route: 042
     Dates: start: 20110603, end: 20110603
  3. TRACRIUM [Suspect]
     Indication: ANAESTHESIA
     Dosage: 50MG/5ML (1%)
     Route: 042
     Dates: start: 20110603, end: 20110603
  4. ATARAX [Concomitant]
     Indication: ANAESTHESIA PROCEDURE
     Route: 048
     Dates: start: 20110603, end: 20110603
  5. DIPRIVAN [Suspect]
     Indication: ANAESTHESIA
     Route: 042
     Dates: start: 20110603, end: 20110603
  6. SUFENTANIL CITRATE [Suspect]
     Indication: ANAESTHESIA
     Route: 042
     Dates: start: 20110603, end: 20110603
  7. IMOVANE [Concomitant]
     Route: 048
     Dates: start: 20110602, end: 20110602

REACTIONS (3)
  - ANAPHYLACTIC SHOCK [None]
  - URTICARIA [None]
  - BRONCHOSPASM [None]
